FAERS Safety Report 6211450-5 (Version None)
Quarter: 2009Q2

REPORT INFORMATION
  Report Type: 
  Country: None (occurrence: None)
  Receive Date: 20090522
  Receipt Date: 20090416
  Transmission Date: 20091009
  Serious: No
  Sender: FDA-Public Use
  Company Number: 8044904

PATIENT
  Sex: Female
  Weight: 65.9 kg

DRUGS (16)
  1. CIMZIA [Suspect]
     Indication: CROHN'S DISEASE
     Dosage: 400 MG SC
     Route: 058
     Dates: start: 20090301
  2. AGGRENOX [Concomitant]
  3. PREVACID [Concomitant]
  4. FOLIC ACID [Concomitant]
  5. SEROQUEL [Concomitant]
  6. SINGULAIR [Concomitant]
  7. SULINDAC [Concomitant]
  8. PAXIL [Concomitant]
  9. ADVAIR HFA [Concomitant]
  10. CALTRATE [Concomitant]
  11. POTASSIUM CHLORIDE [Concomitant]
  12. MULTI-VITAMIN [Concomitant]
  13. LORAZEPAM [Concomitant]
  14. ALENDRONATE [Concomitant]
  15. SPIRIVA [Concomitant]
  16. COMBIVENT [Concomitant]

REACTIONS (7)
  - ABDOMINAL DISTENSION [None]
  - ANGIOEDEMA [None]
  - DIARRHOEA [None]
  - OEDEMA PERIPHERAL [None]
  - OROPHARYNGEAL PAIN [None]
  - PAIN [None]
  - WEIGHT INCREASED [None]
